FAERS Safety Report 11062329 (Version 1)
Quarter: 2015Q2

REPORT INFORMATION
  Report Type: Report from Study
  Country: NL (occurrence: NL)
  Receive Date: 20150424
  Receipt Date: 20150424
  Transmission Date: 20150821
  Serious: Yes (Hospitalization)
  Sender: FDA-Public Use
  Company Number: NL-AMGEN-NLDSL2015038467

PATIENT
  Age: 47 Year
  Sex: Female

DRUGS (2)
  1. XGEVA [Suspect]
     Active Substance: DENOSUMAB
     Indication: NEPHROGENIC ANAEMIA
  2. XGEVA [Suspect]
     Active Substance: DENOSUMAB
     Indication: PROPHYLAXIS
     Dosage: 1.7 ML, (70 MG/ML), Q4WK
     Route: 058
     Dates: start: 20150306

REACTIONS (2)
  - Malnutrition [Unknown]
  - Off label use [Unknown]

NARRATIVE: CASE EVENT DATE: 20150306
